FAERS Safety Report 5821543-X (Version None)
Quarter: 2008Q3

REPORT INFORMATION
  Report Type: 
  Country: None (occurrence: None)
  Receive Date: 20080724
  Receipt Date: 20080710
  Transmission Date: 20090109
  Serious: Yes (Disabling)
  Sender: FDA-Public Use
  Company Number: PHHY2008MX13771

PATIENT
  Sex: Male

DRUGS (2)
  1. ZOMETA [Suspect]
     Indication: PROSTATE CANCER
     Dosage: 4 MG/5 ML
     Dates: start: 20070701
  2. LUCRIN [Concomitant]
     Indication: PROSTATE CANCER

REACTIONS (3)
  - BONE DENSITOMETRY [None]
  - BONE PAIN [None]
  - OSTEOPOROSIS [None]
